FAERS Safety Report 22325246 (Version 1)
Quarter: 2023Q2

REPORT INFORMATION
  Report Type: Spontaneous
  Country: FR (occurrence: FR)
  Receive Date: 20230516
  Receipt Date: 20230516
  Transmission Date: 20230722
  Serious: Yes (Other)
  Sender: FDA-Public Use
  Company Number: FR-ALXN-A202306379

PATIENT
  Age: 29 Year
  Sex: Female

DRUGS (7)
  1. SOLIRIS [Suspect]
     Active Substance: ECULIZUMAB
     Dosage: 1200 MG, EVERY 15 DAYS
     Route: 041
  2. SOLIRIS [Suspect]
     Active Substance: ECULIZUMAB
     Indication: Myasthenia gravis
     Dosage: 900 MG, QW
     Route: 041
     Dates: start: 20220919
  3. CORTISONE [Concomitant]
     Active Substance: CORTISONE
     Indication: Myasthenia gravis
     Dosage: UNK
     Route: 065
  4. INEXIUM                            /01479302/ [Concomitant]
     Indication: Gastritis prophylaxis
     Dosage: UNK
     Route: 065
  5. MYTELASE [Concomitant]
     Active Substance: AMBENONIUM CHLORIDE
     Indication: Myasthenia gravis
     Dosage: UNK
     Route: 065
  6. SPIRAMYCIN [Concomitant]
     Active Substance: SPIRAMYCIN
     Indication: Antibiotic prophylaxis
     Dosage: UNK
     Route: 065
  7. TACROLIMUS [Concomitant]
     Active Substance: TACROLIMUS
     Indication: Myasthenia gravis
     Dosage: UNK
     Route: 065

REACTIONS (3)
  - Myasthenia gravis [Recovering/Resolving]
  - Incorrect dose administered [Unknown]
  - Viral infection [Recovered/Resolved]

NARRATIVE: CASE EVENT DATE: 20221201
